FAERS Safety Report 9186985 (Version 2)
Quarter: 2013Q3

REPORT INFORMATION
  Report Type: Spontaneous
  Country: US (occurrence: US)
  Receive Date: 20130325
  Receipt Date: 20130829
  Transmission Date: 20140515
  Serious: Yes (Other)
  Sender: FDA-Public Use
  Company Number: US-PFIZER INC-2013093112

PATIENT
  Age: 47 Year
  Sex: Male

DRUGS (2)
  1. CHANTIX [Suspect]
     Dosage: STARTING PACK
     Dates: start: 20090106
  2. CHANTIX [Suspect]
     Dosage: 1 MG CONTINUING MONTH PACK, 2X/DAY
     Route: 048
     Dates: start: 20090106, end: 20100910

REACTIONS (1)
  - Suicide attempt [Unknown]
